FAERS Safety Report 21770699 (Version 1)
Quarter: 2022Q4

REPORT INFORMATION
  Report Type: Spontaneous
  Country: CN (occurrence: None)
  Receive Date: 20221223
  Receipt Date: 20221223
  Transmission Date: 20230113
  Serious: Yes (Other)
  Sender: FDA-Public Use
  Company Number: 2022A412354

PATIENT
  Age: 19857 Day
  Sex: Male
  Weight: 57 kg

DRUGS (3)
  1. DAPAGLIFLOZIN [Suspect]
     Active Substance: DAPAGLIFLOZIN
     Indication: Type 2 diabetes mellitus
     Route: 048
     Dates: start: 20221205, end: 20221206
  2. ROSIGLITAZONE TARTRATE [Suspect]
     Active Substance: ROSIGLITAZONE TARTRATE
     Indication: Type 2 diabetes mellitus
     Dosage: 4.0 MG; 1 TIME/2 DAYS
     Route: 048
     Dates: start: 20221205, end: 20221206
  3. METFORMIN HYDROCHLORIDE [Concomitant]
     Active Substance: METFORMIN HYDROCHLORIDE
     Indication: Type 2 diabetes mellitus
     Dosage: 1 TIME/2 DAYS
     Route: 048

REACTIONS (4)
  - Dizziness [Recovering/Resolving]
  - Abdominal distension [Recovering/Resolving]
  - Nausea [Recovering/Resolving]
  - Regurgitation [Recovering/Resolving]

NARRATIVE: CASE EVENT DATE: 20221206
